FAERS Safety Report 19971614 (Version 1)
Quarter: 2021Q4

REPORT INFORMATION
  Report Type: Spontaneous
  Country: FR (occurrence: FR)
  Receive Date: 20211020
  Receipt Date: 20211020
  Transmission Date: 20220303
  Serious: Yes (Other)
  Sender: FDA-Public Use
  Company Number: FR-TEVA-2021-FR-1966448

PATIENT
  Age: 64 Year
  Sex: Male

DRUGS (3)
  1. PREDNISOLONE [Interacting]
     Active Substance: PREDNISOLONE
     Indication: Pruritus
     Dosage: 20 MILLIGRAM DAILY;
     Route: 065
     Dates: start: 20181220
  2. PREDNISOLONE [Interacting]
     Active Substance: PREDNISOLONE
     Dosage: 80 MILLIGRAM DAILY;
     Route: 065
     Dates: start: 20181231
  3. PEMBROLIZUMAB [Interacting]
     Active Substance: PEMBROLIZUMAB
     Indication: Lung adenocarcinoma
     Route: 042
     Dates: start: 201712

REACTIONS (4)
  - Rash maculo-papular [Not Recovered/Not Resolved]
  - Pruritus [Recovered/Resolved]
  - Therapeutic response delayed [Unknown]
  - Drug interaction [Unknown]

NARRATIVE: CASE EVENT DATE: 20180101
